FAERS Safety Report 11075500 (Version 1)
Quarter: 2015Q2

REPORT INFORMATION
  Report Type: Report from Study
  Country: CO (occurrence: CO)
  Receive Date: 20150429
  Receipt Date: 20150429
  Transmission Date: 20150821
  Serious: Yes (Other)
  Sender: FDA-Public Use
  Company Number: CO-ABBVIE-15K-036-1382267-00

PATIENT
  Age: 52 Year
  Sex: Male
  Weight: 84 kg

DRUGS (1)
  1. HUMIRA [Suspect]
     Active Substance: ADALIMUMAB
     Indication: RHEUMATOID ARTHRITIS
     Route: 058
     Dates: start: 20130604, end: 20150320

REACTIONS (3)
  - Pain in extremity [Recovering/Resolving]
  - Inguinal hernia [Recovering/Resolving]
  - Groin pain [Recovering/Resolving]

NARRATIVE: CASE EVENT DATE: 20150327
